FAERS Safety Report 7751320-4 (Version None)
Quarter: 2011Q3

REPORT INFORMATION
  Report Type: 
  Country: None (occurrence: None)
  Receive Date: 20110914
  Receipt Date: 20110909
  Transmission Date: 20111222
  Serious: Yes (Hospitalization)
  Sender: FDA-Public Use
  Company Number: NL-BAYER-2011-084463

PATIENT
  Age: 19 Year
  Sex: Female

DRUGS (1)
  1. GADOVIST 1,0 MMOL/ML [Suspect]
     Indication: PRODUCT USED FOR UNKNOWN INDICATION
     Dosage: 6 ML, ONCE
     Route: 042
     Dates: start: 20110905, end: 20110905

REACTIONS (6)
  - THROAT IRRITATION [None]
  - URTICARIA [None]
  - EYELID OEDEMA [None]
  - ERYTHEMA [None]
  - SKIN TIGHTNESS [None]
  - DYSPNOEA [None]
